FAERS Safety Report 10637533 (Version 2)
Quarter: 2014Q4

REPORT INFORMATION
  Report Type: Spontaneous
  Country: US (occurrence: US)
  Receive Date: 20141208
  Receipt Date: 20141208
  Transmission Date: 20150529
  Serious: No
  Sender: FDA-Public Use
  Company Number: US-GLAXOSMITHKLINE-A1087539A

PATIENT

DRUGS (16)
  1. FLUCONAZOLE. [Concomitant]
     Active Substance: FLUCONAZOLE
  2. FAMOTIDINE. [Concomitant]
     Active Substance: FAMOTIDINE
  3. POTASSIUM [Concomitant]
     Active Substance: POTASSIUM
  4. SYNTHROID [Concomitant]
     Active Substance: LEVOTHYROXINE SODIUM
  5. BENZONATATE. [Concomitant]
     Active Substance: BENZONATATE
  6. NEXIUM [Concomitant]
     Active Substance: ESOMEPRAZOLE MAGNESIUM
  7. ALBUTEROL SULFATE. [Concomitant]
     Active Substance: ALBUTEROL SULFATE
  8. MONTELUKAST [Concomitant]
     Active Substance: MONTELUKAST SODIUM
  9. VENTOLIN [Concomitant]
     Active Substance: ALBUTEROL SULFATE
  10. VERAPAMIL [Concomitant]
     Active Substance: VERAPAMIL HYDROCHLORIDE
  11. BREO ELLIPTA [Suspect]
     Active Substance: FLUTICASONE FUROATE\VILANTEROL TRIFENATATE
     Indication: CHRONIC OBSTRUCTIVE PULMONARY DISEASE
     Route: 055
     Dates: start: 20140715, end: 20140901
  12. ACTONEL [Concomitant]
     Active Substance: RISEDRONATE SODIUM
  13. SPIRIVA [Concomitant]
     Active Substance: TIOTROPIUM BROMIDE MONOHYDRATE
  14. TRIAMTERENE HCTZ [Concomitant]
     Active Substance: HYDROCHLOROTHIAZIDE\TRIAMTERENE
  15. LOPERAMIDE [Concomitant]
     Active Substance: LOPERAMIDE
  16. GUAIFENESIN + DEXTROMETHORPHAN [Concomitant]

REACTIONS (3)
  - Cough [Unknown]
  - Fatigue [Unknown]
  - Nausea [Unknown]
